FAERS Safety Report 17501025 (Version 1)
Quarter: 2020Q1

REPORT INFORMATION
  Report Type: Spontaneous
  Country: US (occurrence: US)
  Receive Date: 20200304
  Receipt Date: 20200304
  Transmission Date: 20200409
  Serious: Yes (Disabling)
  Sender: FDA-Public Use
  Company Number: None

PATIENT
  Sex: Male
  Weight: 22.5 kg

DRUGS (3)
  1. TRIAMINIC NIGHT TIME COLD AND COUGH [Suspect]
     Active Substance: DIPHENHYDRAMINE HYDROCHLORIDE\PHENYLEPHRINE HYDROCHLORIDE
  2. MULTIVITAMIN [Concomitant]
     Active Substance: VITAMINS
  3. RED 40 [Suspect]
     Active Substance: FD+C RED NO. 40

REACTIONS (8)
  - Screaming [None]
  - Middle insomnia [None]
  - Reaction to azo-dyes [None]
  - Drug tolerance decreased [None]
  - Sleep terror [None]
  - Sleep disorder [None]
  - Blood glucose decreased [None]
  - Nasopharyngitis [None]
